FAERS Safety Report 18389924 (Version 1)
Quarter: 2020Q4

REPORT INFORMATION
  Report Type: Spontaneous
  Country: US (occurrence: US)
  Receive Date: 20201015
  Receipt Date: 20201015
  Transmission Date: 20210114
  Serious: No
  Sender: FDA-Public Use
  Company Number: US-OPTINOSE US, INC-2020OPT000546

PATIENT
  Sex: Female

DRUGS (1)
  1. XHANCE [Suspect]
     Active Substance: FLUTICASONE PROPIONATE
     Indication: EUSTACHIAN TUBE DISORDER
     Route: 045

REACTIONS (5)
  - Anxiety [Unknown]
  - Dizziness [Unknown]
  - Product use in unapproved indication [Unknown]
  - Tremor [Unknown]
  - Feeling abnormal [Unknown]
